FAERS Safety Report 4429622-9 (Version None)
Quarter: 2004Q3

REPORT INFORMATION
  Report Type: 
  Country: None (occurrence: None)
  Receive Date: 20040819
  Receipt Date: 20030813
  Transmission Date: 20050211
  Serious: Yes (Other)
  Sender: FDA-Public Use
  Company Number: PHEH2003US07248

PATIENT
  Age: 62 Year
  Sex: Male

DRUGS (6)
  1. FLONASE [Concomitant]
  2. VICODIN ES [Concomitant]
  3. VALTREX [Concomitant]
  4. DEBROX ^SMITHKLINE BEECHAM^ [Concomitant]
  5. ZYRTEC [Concomitant]
  6. LAMISIL [Suspect]
     Dosage: 250 MG, QD
     Route: 048
     Dates: start: 20030321

REACTIONS (2)
  - LYMPHADENOPATHY [None]
  - LYMPHOMA [None]
